FAERS Safety Report 9385851 (Version 2)
Quarter: 2013Q3

REPORT INFORMATION
  Report Type: Report from Study
  Country: US (occurrence: US)
  Receive Date: 20130705
  Receipt Date: 20130822
  Transmission Date: 20140515
  Serious: Yes (Other)
  Sender: FDA-Public Use
  Company Number: US-ABBOTT-13P-163-1112093-00

PATIENT
  Sex: Female
  Weight: 72.64 kg

DRUGS (5)
  1. HUMIRA [Suspect]
     Indication: PSORIASIS
     Dosage: ONCE
     Dates: start: 201210, end: 201210
  2. HUMIRA [Suspect]
     Dates: start: 201210, end: 201305
  3. HYDROCHLOROTHIAZIDE [Concomitant]
     Indication: HYPERTENSION
  4. FISH OIL [Concomitant]
     Indication: SUPPLEMENTATION THERAPY
  5. VITAMIN D [Concomitant]
     Indication: VITAMIN SUPPLEMENTATION

REACTIONS (3)
  - Gait disturbance [Recovering/Resolving]
  - Multiple sclerosis [Recovering/Resolving]
  - Osteoarthritis [Recovering/Resolving]
